FAERS Safety Report 5850515-4 (Version None)
Quarter: 2008Q3

REPORT INFORMATION
  Report Type: 
  Country: None (occurrence: None)
  Receive Date: 20080818
  Receipt Date: 20080807
  Transmission Date: 20090109
  Serious: Yes (Other)
  Sender: FDA-Public Use
  Company Number: 2008SP016136

PATIENT
  Age: 68 Year
  Sex: Male

DRUGS (2)
  1. TEMOZOLOMIDE [Suspect]
     Indication: METASTATIC MALIGNANT MELANOMA
     Dates: start: 20070301
  2. PEG-INTRON [Suspect]
     Indication: METASTATIC MALIGNANT MELANOMA
     Dates: start: 20070301

REACTIONS (13)
  - ANOREXIA [None]
  - CONSTIPATION [None]
  - COUGH [None]
  - DIARRHOEA [None]
  - EPIDIDYMAL CYST [None]
  - FATIGUE [None]
  - FLUID RETENTION [None]
  - HYDROCELE [None]
  - MOOD ALTERED [None]
  - NAUSEA [None]
  - PAIN [None]
  - SCROTAL OEDEMA [None]
  - WEIGHT INCREASED [None]
